FAERS Safety Report 17610464 (Version 1)
Quarter: 2020Q1

REPORT INFORMATION
  Report Type: Spontaneous
  Country: US (occurrence: US)
  Receive Date: 20200330
  Receipt Date: 20200330
  Transmission Date: 20200409
  Serious: No
  Sender: FDA-Public Use
  Company Number: None

PATIENT
  Age: 64 Year
  Sex: Male
  Weight: 95 kg

DRUGS (2)
  1. SPIRONOLACTONE (SPIRONOLACTONE 50MG TAB) [Suspect]
     Active Substance: SPIRONOLACTONE
     Route: 048
     Dates: start: 20171108, end: 20190112
  2. FUROSEMIDE (FUROSEMIDE 40MG TAB) [Suspect]
     Active Substance: FUROSEMIDE
     Indication: HEPATIC CIRRHOSIS
     Route: 048
     Dates: start: 20171108, end: 20181205

REACTIONS (4)
  - Acute kidney injury [None]
  - Vomiting [None]
  - Ascites [None]
  - Nausea [None]

NARRATIVE: CASE EVENT DATE: 20181130
